FAERS Safety Report 16039171 (Version 1)
Quarter: 2019Q1

REPORT INFORMATION
  Report Type: Spontaneous
  Country: US (occurrence: US)
  Receive Date: 20190306
  Receipt Date: 20190306
  Transmission Date: 20190418
  Serious: No
  Sender: FDA-Public Use
  Company Number: US-009507513-1902USA010527

PATIENT
  Age: 68 Year
  Sex: Male

DRUGS (3)
  1. ZOCOR [Suspect]
     Active Substance: SIMVASTATIN
     Dosage: 40MG/DAY
     Dates: start: 201802
  2. ZOCOR [Suspect]
     Active Substance: SIMVASTATIN
     Dosage: 30 MILLIGRAM, QD
  3. ZOCOR [Suspect]
     Active Substance: SIMVASTATIN
     Dosage: 30MG/DAY, AT LEAST 10 YEARS AGO
     Dates: start: 2009

REACTIONS (4)
  - Musculoskeletal stiffness [Not Recovered/Not Resolved]
  - Trigger finger [Recovering/Resolving]
  - Dysarthria [Not Recovered/Not Resolved]
  - Arthralgia [Not Recovered/Not Resolved]

NARRATIVE: CASE EVENT DATE: 201802
